FAERS Safety Report 4748010-9 (Version None)
Quarter: 2005Q3

REPORT INFORMATION
  Report Type: 
  Country: None (occurrence: None)
  Receive Date: 20050817
  Receipt Date: 20050531
  Transmission Date: 20060218
  Serious: Yes (Hospitalization)
  Sender: FDA-Public Use
  Company Number: PI2005-81

PATIENT

DRUGS (1)
  1. CHLORAPREP ONE-STEP FREPP [Suspect]
     Indication: PREOPERATIVE CARE
     Dosage: 0.67ML, ONCE, TOPICAL
     Route: 061
     Dates: start: 20050501

REACTIONS (4)
  - HYPOTENSION [None]
  - LOSS OF CONSCIOUSNESS [None]
  - STRIDOR [None]
  - SWOLLEN TONGUE [None]
